FAERS Safety Report 6442063-8 (Version None)
Quarter: 2009Q4

REPORT INFORMATION
  Report Type: 
  Country: None (occurrence: None)
  Receive Date: 20091116
  Receipt Date: 20091102
  Transmission Date: 20100525
  Serious: Yes (Other)
  Sender: FDA-Public Use
  Company Number: PHHY2009NL48977

PATIENT
  Age: 40 Year
  Sex: Female

DRUGS (4)
  1. CALCITONIN [Suspect]
     Indication: BLOOD CALCIUM INCREASED
     Dosage: 200 UG, UNK
     Route: 058
  2. CALCITONIN [Suspect]
     Dosage: 100 UG, EVERY ALTERNATE DAY
     Route: 058
  3. CINACALCET [Concomitant]
     Dosage: 30 MG, BID
  4. CINACALCET [Concomitant]
     Dosage: 240 MG PER DAY

REACTIONS (3)
  - CAESAREAN SECTION [None]
  - DRUG EXPOSURE DURING PREGNANCY [None]
  - PREMATURE LABOUR [None]
